FAERS Safety Report 13629521 (Version 1)
Quarter: 2017Q2

REPORT INFORMATION
  Report Type: Spontaneous
  Country: US (occurrence: US)
  Receive Date: 20170531
  Receipt Date: 20170531
  Transmission Date: 20170830
  Serious: No
  Sender: FDA-Public Use
  Company Number: US-ASTELLAS-1205037

PATIENT
  Sex: Female

DRUGS (4)
  1. TARCEVA [Suspect]
     Active Substance: ERLOTINIB HYDROCHLORIDE
     Indication: NON-SMALL CELL LUNG CANCER
     Route: 065
     Dates: start: 201206
  2. METFORMIN [Concomitant]
     Active Substance: METFORMIN HYDROCHLORIDE
  3. LANTUS [Concomitant]
     Active Substance: INSULIN GLARGINE
  4. TARCEVA [Suspect]
     Active Substance: ERLOTINIB HYDROCHLORIDE
     Dosage: DOSE REDUCED
     Route: 065

REACTIONS (9)
  - Skin fissures [Unknown]
  - Tongue blistering [Unknown]
  - Peripheral swelling [Unknown]
  - Pain in extremity [Unknown]
  - Haemorrhage [Unknown]
  - Tooth extraction [Unknown]
  - Ingrowing nail [Unknown]
  - Onychomycosis [Unknown]
  - Oesophageal mucosal blister [Unknown]
